FAERS Safety Report 18039587 (Version 1)
Quarter: 2020Q3

REPORT INFORMATION
  Report Type: Spontaneous
  Country: TR (occurrence: TR)
  Receive Date: 20200718
  Receipt Date: 20200718
  Transmission Date: 20201103
  Serious: No
  Sender: FDA-Public Use
  Company Number: TR-LUPIN PHARMACEUTICALS INC.-2019-06718

PATIENT
  Age: 27 Year
  Sex: Female

DRUGS (12)
  1. CYCLOSERINE. [Suspect]
     Active Substance: CYCLOSERINE
     Indication: TUBERCULOSIS
     Dosage: 750 MILLIGRAM
     Route: 065
  2. MOXIFLOXACIN. [Concomitant]
     Active Substance: MOXIFLOXACIN
     Indication: TUBERCULOSIS
     Dosage: 400 MILLIGRAM
     Route: 065
  3. PYRAZINAMIDE. [Concomitant]
     Active Substance: PYRAZINAMIDE
     Indication: TUBERCULOSIS
     Dosage: 2000 MILLIGRAM
     Route: 065
  4. PAS [AMINOSALICYLATE SODIUM] [Concomitant]
     Dosage: 8 GRAM
     Route: 065
  5. LINEZOLIDE [Concomitant]
     Active Substance: LINEZOLID
     Indication: TUBERCULOSIS
     Dosage: 600 MILLIGRAM
     Route: 065
  6. ETHIONAMIDE [Concomitant]
     Active Substance: ETHIONAMIDE
     Indication: TUBERCULOSIS
     Dosage: 750 MILLIGRAM
     Route: 065
  7. PROTIONAMIDE [Concomitant]
     Active Substance: PROTIONAMIDE
     Indication: TUBERCULOSIS
     Dosage: 150 MILLIGRAM
     Route: 065
  8. ETHAMBUTOL [Suspect]
     Active Substance: ETHAMBUTOL HYDROCHLORIDE
     Indication: TUBERCULOSIS
     Dosage: 1500 MILLIGRAM
     Route: 065
  9. MOXIFLOXACIN. [Concomitant]
     Active Substance: MOXIFLOXACIN
     Dosage: 400 MILLIGRAM (DIVIDED IN TO 4 DOSES)
     Route: 065
  10. AMIKACIN. [Concomitant]
     Active Substance: AMIKACIN
     Indication: TUBERCULOSIS
     Dosage: 1 GRAM (DIVIDED IN TO 4 FOUR DOSES)
  11. METHYLPREDNISOLONE. [Concomitant]
     Active Substance: METHYLPREDNISOLONE
     Indication: TUBERCULOSIS
     Dosage: UNK
     Route: 065
  12. PAS [AMINOSALICYLATE SODIUM] [Concomitant]
     Indication: TUBERCULOSIS
     Dosage: 9 GRAM
     Route: 065

REACTIONS (2)
  - Rash [Unknown]
  - Pruritus [Unknown]
